FAERS Safety Report 17461838 (Version 1)
Quarter: 2020Q1

REPORT INFORMATION
  Report Type: Spontaneous
  Country: US (occurrence: US)
  Receive Date: 20200226
  Receipt Date: 20200226
  Transmission Date: 20200409
  Serious: No
  Sender: FDA-Public Use
  Company Number: US-NOVOPROD-644088

PATIENT
  Age: 49 Year
  Sex: Female
  Weight: 81.63 kg

DRUGS (1)
  1. SAXENDA [Suspect]
     Active Substance: LIRAGLUTIDE
     Indication: WEIGHT DECREASED
     Dosage: UNK
     Route: 058
     Dates: start: 2018, end: 2018

REACTIONS (7)
  - Injection site irritation [Recovered/Resolved]
  - Weight loss poor [Unknown]
  - Injection site pain [Recovered/Resolved]
  - Wrong technique in product usage process [Unknown]
  - Emotional distress [Unknown]
  - Injection site bruising [Recovered/Resolved]
  - Injection site erythema [Recovered/Resolved]

NARRATIVE: CASE EVENT DATE: 2018
